FAERS Safety Report 9745583 (Version 2)
Quarter: 2014Q3

REPORT INFORMATION
  Report Type: Spontaneous
  Country: US (occurrence: US)
  Receive Date: 20131211
  Receipt Date: 20140702
  Transmission Date: 20150326
  Serious: Yes (Other)
  Sender: FDA-Public Use
  Company Number: US-BAYER-2013-148060

PATIENT
  Age: 18 Year
  Sex: Female
  Weight: 69 kg

DRUGS (2)
  1. MIRENA [Suspect]
     Active Substance: LEVONORGESTREL
     Indication: ABDOMINAL PAIN LOWER
     Dosage: 20 MCG/24HR, CONT
     Route: 015
     Dates: start: 20131017, end: 20131029
  2. MIRENA [Suspect]
     Active Substance: LEVONORGESTREL
     Indication: CONTRACEPTION

REACTIONS (5)
  - Menstruation delayed [Not Recovered/Not Resolved]
  - Off label use [None]
  - Vomiting [None]
  - Uterine haemorrhage [Not Recovered/Not Resolved]
  - Abdominal pain lower [Not Recovered/Not Resolved]

NARRATIVE: CASE EVENT DATE: 2013
